FAERS Safety Report 7283384-9 (Version None)
Quarter: 2011Q1

REPORT INFORMATION
  Report Type: 
  Country: None (occurrence: None)
  Receive Date: 20110209
  Receipt Date: 20100715
  Transmission Date: 20110831
  Serious: No
  Sender: FDA-Public Use
  Company Number: A0872600A

PATIENT
  Age: 61 Year
  Sex: Female

DRUGS (2)
  1. NONE [Concomitant]
  2. PAXIL [Suspect]
     Indication: ANXIETY
     Dosage: 10MG PER DAY
     Route: 048

REACTIONS (1)
  - DRY EYE [None]
